FAERS Safety Report 5677864-7 (Version None)
Quarter: 2008Q1

REPORT INFORMATION
  Report Type: 
  Country: None (occurrence: None)
  Receive Date: 20080319
  Receipt Date: 20080305
  Transmission Date: 20080703
  Serious: Yes (Other)
  Sender: FDA-Public Use
  Company Number: CHPA2008US04004

PATIENT
  Age: 24 Year
  Sex: Male

DRUGS (2)
  1. EXCEDRIN (MIGRAINE) [Suspect]
     Indication: MIGRAINE
     Dosage: 1 DF, QD, ORAL; 2 DF, QD, ORAL; 3 DF, QD, ORAL; 7DF, QD, ORAL; 1 DF, BID, ORAL
     Route: 048
     Dates: start: 20080304, end: 20080304
  2. EXCEDRIN (MIGRAINE) [Suspect]
     Indication: MIGRAINE
     Dosage: 1 DF, QD, ORAL; 2 DF, QD, ORAL; 3 DF, QD, ORAL; 7DF, QD, ORAL; 1 DF, BID, ORAL
     Route: 048
     Dates: start: 20020101

REACTIONS (2)
  - DRUG DEPENDENCE [None]
  - OVERDOSE [None]
